FAERS Safety Report 16283021 (Version 2)
Quarter: 2021Q1

REPORT INFORMATION
  Report Type: Spontaneous
  Country: US (occurrence: US)
  Receive Date: 20190507
  Receipt Date: 20210215
  Transmission Date: 20210419
  Serious: Yes (Death, Hospitalization, Other)
  Sender: FDA-Public Use
  Company Number: US-ASTRAZENECA-2019SE62594

PATIENT
  Age: 61 Year
  Sex: Female
  Weight: 58.5 kg

DRUGS (61)
  1. NEXIUM [Suspect]
     Active Substance: ESOMEPRAZOLE MAGNESIUM
     Indication: GASTROOESOPHAGEAL REFLUX DISEASE
     Route: 048
     Dates: start: 2001
  2. PRILOSEC [Suspect]
     Active Substance: OMEPRAZOLE MAGNESIUM
     Indication: GASTROOESOPHAGEAL REFLUX DISEASE
     Route: 048
     Dates: start: 200001, end: 201012
  3. PRILOSEC [Suspect]
     Active Substance: OMEPRAZOLE MAGNESIUM
     Indication: DYSPEPSIA
     Route: 048
     Dates: start: 200001, end: 201012
  4. PREVACID [Suspect]
     Active Substance: LANSOPRAZOLE
     Indication: GASTROOESOPHAGEAL REFLUX DISEASE
     Route: 065
     Dates: start: 2003, end: 2010
  5. PROTONIX [Suspect]
     Active Substance: PANTOPRAZOLE SODIUM
     Indication: GASTROOESOPHAGEAL REFLUX DISEASE
     Route: 065
     Dates: start: 200001, end: 201012
  6. FUROSEMIDE. [Concomitant]
     Active Substance: FUROSEMIDE
     Indication: HYPERTENSION
     Dates: start: 2017
  7. SERTRALINE [Concomitant]
     Active Substance: SERTRALINE HYDROCHLORIDE
  8. ZOVIRAX [Concomitant]
     Active Substance: ACYCLOVIR
  9. HYDROCODONE/ACETAMINOPHEN [Concomitant]
     Active Substance: ACETAMINOPHEN\HYDROCODONE
  10. CARVEDILOL. [Concomitant]
     Active Substance: CARVEDILOL
  11. HYDROCORTISONE. [Concomitant]
     Active Substance: HYDROCORTISONE
  12. PROMETHAZINE [Concomitant]
     Active Substance: PROMETHAZINE HYDROCHLORIDE
  13. DIPHENHYDRAMINE. [Concomitant]
     Active Substance: DIPHENHYDRAMINE
  14. PREVACID [Suspect]
     Active Substance: LANSOPRAZOLE
     Indication: DYSPEPSIA
     Route: 065
     Dates: start: 2003, end: 2010
  15. PROTONIX [Suspect]
     Active Substance: PANTOPRAZOLE SODIUM
     Indication: DYSPEPSIA
     Route: 065
     Dates: start: 200001, end: 201012
  16. SULFAMETHOXAZOLE [Concomitant]
     Active Substance: SULFAMETHOXAZOLE
     Indication: INFECTION
     Dates: start: 2018
  17. CALCITRIOL. [Concomitant]
     Active Substance: CALCITRIOL
  18. LEVOTHYROXINE. [Concomitant]
     Active Substance: LEVOTHYROXINE
  19. TRIAMCINOLONE [Concomitant]
     Active Substance: TRIAMCINOLONE
  20. ITRACONAZOLE. [Concomitant]
     Active Substance: ITRACONAZOLE
  21. ACETAMINOPHEN. [Concomitant]
     Active Substance: ACETAMINOPHEN
  22. DEXTROSE. [Concomitant]
     Active Substance: DEXTROSE
  23. NEXIUM [Suspect]
     Active Substance: ESOMEPRAZOLE MAGNESIUM
     Indication: DYSPEPSIA
     Route: 048
     Dates: start: 2001
  24. PRILOSEC [Suspect]
     Active Substance: OMEPRAZOLE MAGNESIUM
     Indication: DYSPEPSIA
     Route: 048
     Dates: start: 2003, end: 2010
  25. AZITHROMYCIN ANHYDROUS. [Concomitant]
     Active Substance: AZITHROMYCIN ANHYDROUS
     Indication: PNEUMONIA
     Dates: start: 2016
  26. DOXEPIN [Concomitant]
     Active Substance: DOXEPIN
  27. BUPROPION. [Concomitant]
     Active Substance: BUPROPION
  28. BENZONATATE. [Concomitant]
     Active Substance: BENZONATATE
  29. TEMAZEPAM. [Concomitant]
     Active Substance: TEMAZEPAM
  30. CEPHALEXIN. [Concomitant]
     Active Substance: CEPHALEXIN
  31. PRILOSEC [Suspect]
     Active Substance: OMEPRAZOLE MAGNESIUM
     Indication: GASTROOESOPHAGEAL REFLUX DISEASE
     Route: 048
     Dates: start: 2003, end: 2010
  32. PREVACID [Suspect]
     Active Substance: LANSOPRAZOLE
     Indication: GASTROOESOPHAGEAL REFLUX DISEASE
     Route: 065
     Dates: start: 200001, end: 201012
  33. PROTONIX [Suspect]
     Active Substance: PANTOPRAZOLE SODIUM
     Indication: DYSPEPSIA
     Route: 065
     Dates: start: 2001
  34. PRAVASTATIN. [Concomitant]
     Active Substance: PRAVASTATIN
     Indication: BLOOD CHOLESTEROL ABNORMAL
     Dates: start: 2015, end: 2018
  35. CIPROFLOXACIN. [Concomitant]
     Active Substance: CIPROFLOXACIN
     Indication: LOWER RESPIRATORY TRACT INFECTION
     Dates: start: 2018
  36. HYDROXYZINE [Concomitant]
     Active Substance: HYDROXYZINE HYDROCHLORIDE
  37. CARAFATE [Concomitant]
     Active Substance: SUCRALFATE
  38. GENTAMICIN. [Concomitant]
     Active Substance: GENTAMICIN
  39. PRILOSEC [Suspect]
     Active Substance: OMEPRAZOLE MAGNESIUM
     Indication: GASTROOESOPHAGEAL REFLUX DISEASE
     Dosage: GENERIC
     Route: 065
     Dates: start: 2014
  40. PREVACID [Suspect]
     Active Substance: LANSOPRAZOLE
     Indication: DYSPEPSIA
     Route: 065
     Dates: start: 200001, end: 201012
  41. AZITHROMYCIN ANHYDROUS. [Concomitant]
     Active Substance: AZITHROMYCIN ANHYDROUS
     Indication: SINUSITIS
     Dates: start: 2016
  42. ONDASETRON [Concomitant]
     Active Substance: ONDANSETRON
  43. EPOGEN [Concomitant]
     Active Substance: ERYTHROPOIETIN
  44. NEBCIN [Concomitant]
     Active Substance: TOBRAMYCIN SULFATE
  45. DIFLUCAN [Concomitant]
     Active Substance: FLUCONAZOLE
  46. SODIUM CHLORIDE. [Concomitant]
     Active Substance: SODIUM CHLORIDE
  47. NEXIUM [Suspect]
     Active Substance: ESOMEPRAZOLE MAGNESIUM
     Indication: GASTROOESOPHAGEAL REFLUX DISEASE
     Route: 048
     Dates: start: 200001, end: 201012
  48. PRILOSEC [Suspect]
     Active Substance: OMEPRAZOLE MAGNESIUM
     Indication: DYSPEPSIA
     Dosage: GENERIC
     Route: 065
     Dates: start: 2014
  49. AMOXICILLIN. [Concomitant]
     Active Substance: AMOXICILLIN
     Indication: LOWER RESPIRATORY TRACT INFECTION
     Dates: start: 2016
  50. POTASSIUM CHLORIDE. [Concomitant]
     Active Substance: POTASSIUM CHLORIDE
  51. PROTONIX [Suspect]
     Active Substance: PANTOPRAZOLE SODIUM
     Indication: GASTROOESOPHAGEAL REFLUX DISEASE
     Route: 065
     Dates: start: 2001
  52. GABAPENTIN. [Concomitant]
     Active Substance: GABAPENTIN
  53. ZOLPIDEM [Concomitant]
     Active Substance: ZOLPIDEM TARTRATE
  54. DOXYCYCLINE. [Concomitant]
     Active Substance: DOXYCYCLINE
  55. METOCLOPRAMIDE. [Concomitant]
     Active Substance: METOCLOPRAMIDE
  56. CLONIDINE. [Concomitant]
     Active Substance: CLONIDINE
  57. NEXIUM [Suspect]
     Active Substance: ESOMEPRAZOLE MAGNESIUM
     Indication: DYSPEPSIA
     Route: 048
     Dates: start: 200001, end: 201012
  58. FOLBEE [Concomitant]
     Active Substance: CYANOCOBALAMIN\FOLIC ACID\PYRIDOXINE HYDROCHLORIDE
  59. NORTRIPTYLINE [Concomitant]
     Active Substance: NORTRIPTYLINE
  60. MUPIROCIN. [Concomitant]
     Active Substance: MUPIROCIN
  61. ULTRAM [Concomitant]
     Active Substance: TRAMADOL HYDROCHLORIDE

REACTIONS (6)
  - Chronic kidney disease [Unknown]
  - Nephrogenic anaemia [Unknown]
  - Renal failure [Unknown]
  - Type 2 diabetes mellitus [Fatal]
  - Hyperparathyroidism secondary [Unknown]
  - End stage renal disease [Fatal]

NARRATIVE: CASE EVENT DATE: 2010
